FAERS Safety Report 6215414-7 (Version None)
Quarter: 2009Q2

REPORT INFORMATION
  Report Type: 
  Country: None (occurrence: None)
  Receive Date: 20090603
  Receipt Date: 20090520
  Transmission Date: 20091009
  Serious: Yes (Hospitalization)
  Sender: FDA-Public Use
  Company Number: 2009SP001319

PATIENT
  Age: 83 Year
  Sex: Female

DRUGS (14)
  1. XOPENEX [Suspect]
     Indication: ASTHMA
     Dosage: 1.25 MG/3ML; PRN; INHALATION, 1.25 MG/3ML;QID; INHALATION
     Route: 055
     Dates: start: 20080101, end: 20090401
  2. XOPENEX [Suspect]
     Indication: ASTHMA
     Dosage: 1.25 MG/3ML; PRN; INHALATION, 1.25 MG/3ML;QID; INHALATION
     Route: 055
     Dates: start: 20060901
  3. XOPENEX [Suspect]
     Indication: ASTHMA
     Dosage: 1.25 MG/3ML; PRN; INHALATION, 1.25 MG/3ML;QID; INHALATION
     Route: 055
     Dates: start: 20090401
  4. PLAVIX [Concomitant]
  5. DIOVAN [Concomitant]
  6. METFORMIN HYDROCHLORIDE [Concomitant]
  7. THYROID TAB [Concomitant]
  8. DAILY VITAMINS [Concomitant]
  9. VITAMIN D [Concomitant]
  10. MAGNESIUM SULFATE [Concomitant]
  11. ASCORBIC ACID [Concomitant]
  12. VITAMIN E [Concomitant]
  13. OXYGEN [Concomitant]
  14. PREV MED [Concomitant]

REACTIONS (7)
  - ASTHMA [None]
  - BRADYARRHYTHMIA [None]
  - CONDITION AGGRAVATED [None]
  - CORONARY ARTERY DISEASE [None]
  - SPUTUM ABNORMAL [None]
  - SYNCOPE [None]
  - TREMOR [None]
